FAERS Safety Report 14232932 (Version 1)
Quarter: 2017Q4

REPORT INFORMATION
  Report Type: Spontaneous
  Country: US (occurrence: None)
  Receive Date: 20171128
  Receipt Date: 20171128
  Transmission Date: 20180321
  Serious: Yes (Hospitalization)
  Sender: FDA-Public Use
  Company Number: None

PATIENT
  Age: 39 Year
  Sex: Female
  Weight: 64.5 kg

DRUGS (4)
  1. METHOTREXATE. [Suspect]
     Active Substance: METHOTREXATE
     Dates: end: 20171113
  2. ETOPOSIDE (VP-16) [Suspect]
     Active Substance: ETOPOSIDE
     Dates: end: 20171117
  3. CYTARABINE. [Suspect]
     Active Substance: CYTARABINE
     Dates: end: 20171117
  4. ERWINIA ASPARAGINASE [Suspect]
     Active Substance: ASPARAGINASE ERWINIA CHRYSANTHEMI
     Dosage: 200000 UNIT
     Dates: end: 20171124

REACTIONS (15)
  - Hypotension [None]
  - Enterovirus test positive [None]
  - Haemoglobin decreased [None]
  - Pleuritic pain [None]
  - Platelet count decreased [None]
  - White blood cell count decreased [None]
  - Tachycardia [None]
  - Vomiting [None]
  - Dyspnoea [None]
  - Fatigue [None]
  - Pyrexia [None]
  - Nausea [None]
  - Blood culture positive [None]
  - Cough [None]
  - Human rhinovirus test positive [None]

NARRATIVE: CASE EVENT DATE: 20171126
